FAERS Safety Report 24712070 (Version 3)
Quarter: 2024Q4

REPORT INFORMATION
  Report Type: Spontaneous
  Country: CA (occurrence: CA)
  Receive Date: 20241209
  Receipt Date: 20241219
  Transmission Date: 20250114
  Serious: Yes (Death, Hospitalization, Other)
  Sender: PFIZER
  Company Number: CA-PFIZER INC-202400317780

PATIENT
  Age: 85 Year
  Sex: Male

DRUGS (1)
  1. VYNDAMAX [Suspect]
     Active Substance: TAFAMIDIS
     Indication: Cardiomyopathy
     Dosage: 61 MG 1X/DAY
     Route: 048
     Dates: start: 20240221

REACTIONS (2)
  - Cardiac failure [Fatal]
  - Asthenia [Unknown]

NARRATIVE: CASE EVENT DATE: 20240101
